FAERS Safety Report 14479917 (Version 1)
Quarter: 2018Q1

REPORT INFORMATION
  Report Type: Spontaneous
  Country: US (occurrence: US)
  Receive Date: 20180201
  Receipt Date: 20180201
  Transmission Date: 20180509
  Serious: Yes (Hospitalization)
  Sender: FDA-Public Use
  Company Number: None

PATIENT
  Age: 4 Year
  Sex: Female

DRUGS (1)
  1. COPPERTONE SUNSCREEN (OXYBENZONE\PADIMATE) [Suspect]
     Active Substance: OXYBENZONE\PADIMATE O

REACTIONS (1)
  - Hypersensitivity [None]
